FAERS Safety Report 6042613-X (Version None)
Quarter: 2009Q1

REPORT INFORMATION
  Report Type: 
  Country: None (occurrence: None)
  Receive Date: 20090119
  Receipt Date: 20090109
  Transmission Date: 20090719
  Serious: Yes (Hospitalization)
  Sender: FDA-Public Use
  Company Number: JP-BAYER-200910109BYL

PATIENT
  Age: 61 Year
  Sex: Male
  Weight: 80 kg

DRUGS (9)
  1. NEXAVAR [Suspect]
     Indication: RENAL CELL CARCINOMA STAGE IV
     Dosage: UNIT DOSE: 200 MG
     Route: 048
     Dates: start: 20080512, end: 20081205
  2. NEXAVAR [Suspect]
     Route: 048
     Dates: start: 20081226
  3. ACTOS [Concomitant]
     Route: 048
     Dates: start: 20080512
  4. CYANOCOBALAMIN [Concomitant]
     Route: 048
     Dates: start: 20080512
  5. MAGMITT [Concomitant]
     Route: 048
     Dates: start: 20080512
  6. ROHYPNOL [Concomitant]
     Route: 048
     Dates: start: 20080512
  7. PREDONINE [Concomitant]
     Route: 048
     Dates: start: 20080531
  8. OMEPRAL [Concomitant]
     Route: 048
     Dates: start: 20080531
  9. NOVAMIN [Concomitant]
     Route: 048
     Dates: start: 20081111, end: 20081118

REACTIONS (3)
  - IMPETIGO [None]
  - OSTEONECROSIS [None]
  - TOOTHACHE [None]
